FAERS Safety Report 4482362-2 (Version None)
Quarter: 2004Q4

REPORT INFORMATION
  Report Type: 
  Country: None (occurrence: None)
  Receive Date: 20041022
  Receipt Date: 20041011
  Transmission Date: 20050328
  Serious: Yes (Hospitalization)
  Sender: FDA-Public Use
  Company Number: US-MERCK-0410USA01586

PATIENT
  Age: 87 Year
  Sex: Female

DRUGS (7)
  1. VIOXX [Suspect]
     Indication: ARTHRITIS
     Route: 048
  2. VIOXX [Suspect]
     Route: 048
  3. VIOXX [Suspect]
     Indication: WOUND COMPLICATION
     Route: 048
  4. VIOXX [Suspect]
     Route: 048
  5. COUMADIN [Concomitant]
     Route: 065
  6. ZOCOR [Concomitant]
     Route: 065
  7. PRINIVIL [Concomitant]
     Route: 065

REACTIONS (3)
  - ATRIAL FIBRILLATION [None]
  - LYMPHOEDEMA [None]
  - OEDEMA [None]
